FAERS Safety Report 13833540 (Version 1)
Quarter: 2017Q3

REPORT INFORMATION
  Report Type: Spontaneous
  Country: GB (occurrence: GB)
  Receive Date: 20170804
  Receipt Date: 20170804
  Transmission Date: 20171127
  Serious: Yes (Other)
  Sender: FDA-Public Use
  Company Number: GB-BAYER-2017-148112

PATIENT
  Age: 91 Year
  Sex: Male
  Weight: 75 kg

DRUGS (13)
  1. ACETYLSALICYLIC ACID (} 100 MG) [Suspect]
     Active Substance: ASPIRIN
     Dosage: UNK
     Dates: start: 20170725
  2. WARFARIN SODIUM. [Concomitant]
     Active Substance: WARFARIN SODIUM
     Dosage: UNK
     Dates: start: 20080320
  3. FINASTERIDE. [Concomitant]
     Active Substance: FINASTERIDE
     Dosage: 1 DF, QD
     Dates: start: 20160705
  4. MACROGOL [Concomitant]
     Active Substance: POLYETHYLENE GLYCOLS
     Dosage: UNK
     Dates: start: 20160922
  5. SINEMET [Concomitant]
     Active Substance: CARBIDOPA\LEVODOPA
     Dosage: 1 DF, QID
     Dates: start: 20130805
  6. POVIDONE-IODINE. [Concomitant]
     Active Substance: POVIDONE-IODINE
     Dosage: 1 DF, TID
     Dates: start: 20170503, end: 20170602
  7. ISPAGHULA EXTRACT\PSYLLIUM [Concomitant]
     Active Substance: PLANTAGO OVATA SEED\PLANTAGO SEED
     Dosage: UNK
     Dates: start: 20150622
  8. ALLOPURINOL. [Concomitant]
     Active Substance: ALLOPURINOL
     Dosage: 1 DF, QD
     Dates: start: 19901213
  9. BISOPROLOL [Concomitant]
     Active Substance: BISOPROLOL
     Dosage: 1 DF, QD
     Dates: start: 20110610
  10. FUROSEMIDE. [Concomitant]
     Active Substance: FUROSEMIDE
     Dosage: 1 DF, QID
     Dates: start: 20161215
  11. FERROUS FUMARATE [Concomitant]
     Active Substance: FERROUS FUMARATE
     Dosage: 1 DF, BID
     Dates: start: 20160608
  12. FLUCLOXACILLIN [Concomitant]
     Active Substance: FLUCLOXACILLIN
     Dosage: 1 DF, UNK
     Dates: start: 20170503, end: 20170510
  13. CONOTRANE [Concomitant]
     Dosage: UNK
     Dates: start: 20160519

REACTIONS (2)
  - Gastric disorder [Unknown]
  - Gastric ulcer [None]

NARRATIVE: CASE EVENT DATE: 20170725
